FAERS Safety Report 16325724 (Version 1)
Quarter: 2019Q2

REPORT INFORMATION
  Report Type: Spontaneous
  Country: US (occurrence: US)
  Receive Date: 20190516
  Receipt Date: 20190516
  Transmission Date: 20190711
  Serious: Yes (Hospitalization)
  Sender: FDA-Public Use
  Company Number: None

PATIENT
  Age: 75 Year
  Sex: Male

DRUGS (16)
  1. GLIMEPIRIDE. [Concomitant]
     Active Substance: GLIMEPIRIDE
  2. WARFARIN [Concomitant]
     Active Substance: WARFARIN
  3. FENOFIBRATE. [Concomitant]
     Active Substance: FENOFIBRATE
  4. METOPROL TAR [Concomitant]
  5. LIPITOR [Concomitant]
     Active Substance: ATORVASTATIN CALCIUM
  6. DILTIAZEM. [Concomitant]
     Active Substance: DILTIAZEM
  7. FLUTICASONE. [Concomitant]
     Active Substance: FLUTICASONE
  8. VASCEPA [Concomitant]
     Active Substance: ICOSAPENT ETHYL
  9. REVATIO [Suspect]
     Active Substance: SILDENAFIL CITRATE
     Indication: PULMONARY ARTERIAL HYPERTENSION
     Route: 048
     Dates: start: 20161210
  10. MAGNESIUM [Concomitant]
     Active Substance: MAGNESIUM
  11. SPIRIVA [Concomitant]
     Active Substance: TIOTROPIUM BROMIDE MONOHYDRATE
  12. FUROSEMIDE. [Concomitant]
     Active Substance: FUROSEMIDE
  13. LYRICA [Concomitant]
     Active Substance: PREGABALIN
  14. POTASSIUM [Concomitant]
     Active Substance: POTASSIUM
  15. TRACLEER [Concomitant]
     Active Substance: BOSENTAN
  16. TYLENOL [Concomitant]
     Active Substance: ACETAMINOPHEN

REACTIONS (1)
  - Urinary tract infection [None]

NARRATIVE: CASE EVENT DATE: 20190421
